FAERS Safety Report 6982830-5 (Version None)
Quarter: 2010Q3

REPORT INFORMATION
  Report Type: 
  Country: None (occurrence: None)
  Receive Date: 20100914
  Receipt Date: 20100327
  Transmission Date: 20110219
  Serious: No
  Sender: FDA-Public Use
  Company Number: US-PFIZER INC-2010039451

PATIENT
  Sex: Male
  Weight: 108.84 kg

DRUGS (1)
  1. LYRICA [Suspect]
     Indication: NERVE INJURY
     Dosage: 50 MG, 1X/DAY
     Route: 048
     Dates: start: 20100201

REACTIONS (1)
  - MYALGIA [None]
